FAERS Safety Report 9015910 (Version 1)
Quarter: 2013Q1

REPORT INFORMATION
  Report Type: Spontaneous
  Country: CA (occurrence: CA)
  Receive Date: 20130116
  Receipt Date: 20130116
  Transmission Date: 20140127
  Serious: Yes (Other)
  Sender: FDA-Public Use
  Company Number: CA-ASTRAZENECA-2013SE02118

PATIENT
  Age: 31 Year
  Sex: Male
  Weight: 61 kg

DRUGS (5)
  1. LIDOCAINE [Suspect]
     Route: 023
  2. LIDOCAINE [Suspect]
     Route: 023
  3. LIDOCAINE [Suspect]
     Route: 023
  4. LIDOCAINE [Suspect]
     Route: 023
  5. LORAZEPAM [Concomitant]
     Route: 060

REACTIONS (9)
  - Overdose [Recovered/Resolved]
  - Hallucination, visual [Recovered/Resolved]
  - Depressed level of consciousness [Recovered/Resolved]
  - Dyspnoea [Recovered/Resolved]
  - Dizziness [Recovered/Resolved]
  - Choking sensation [Recovered/Resolved]
  - Agitation [Recovered/Resolved]
  - Blood pressure increased [Recovered/Resolved]
  - Heart rate increased [Recovered/Resolved]
